FAERS Safety Report 4920646-1 (Version None)
Quarter: 2006Q1

REPORT INFORMATION
  Report Type: 
  Country: None (occurrence: None)
  Receive Date: 20060223
  Receipt Date: 20051021
  Transmission Date: 20060701
  Serious: Yes (Hospitalization, Other)
  Sender: FDA-Public Use
  Company Number: ES-BRISTOL-MYERS SQUIBB COMPANY-13158167

PATIENT
  Age: 38 Year
  Sex: Male

DRUGS (4)
  1. KARVEZIDE [Suspect]
     Dosage: ^300 MG^
     Dates: start: 20050101, end: 20050101
  2. VALSARTAN [Suspect]
  3. IBUPROFEN [Concomitant]
  4. NAPROXEN [Concomitant]

REACTIONS (2)
  - GASTROENTERITIS [None]
  - GUILLAIN-BARRE SYNDROME [None]
